FAERS Safety Report 9648961 (Version 1)
Quarter: 2013Q4

REPORT INFORMATION
  Report Type: Spontaneous
  Country: ES (occurrence: ES)
  Receive Date: 20131028
  Receipt Date: 20131028
  Transmission Date: 20140711
  Serious: Yes (Life-Threatening)
  Sender: FDA-Public Use
  Company Number: ES-PFIZER INC-2013305552

PATIENT
  Age: 53 Year
  Sex: Male

DRUGS (1)
  1. CISPLATIN [Suspect]
     Indication: NASAL SINUS CANCER
     Dosage: UNK
     Route: 042
     Dates: start: 20130408, end: 20130819

REACTIONS (2)
  - Anaphylactic shock [Recovered/Resolved]
  - Pruritus [Recovered/Resolved]
